FAERS Safety Report 5792861-9 (Version None)
Quarter: 2008Q2

REPORT INFORMATION
  Report Type: 
  Country: None (occurrence: None)
  Receive Date: 20080624
  Receipt Date: 20080612
  Transmission Date: 20081010
  Serious: Yes (Other)
  Sender: FDA-Public Use
  Company Number: 235642J08USA

PATIENT
  Age: 43 Year
  Sex: Female
  Weight: 83.9154 kg

DRUGS (8)
  1. REBIF [Suspect]
     Indication: MULTIPLE SCLEROSIS
     Dosage: 44 MCG, 3 IN 1 WEEKS, SUBCUTANEOUS
     Route: 058
     Dates: start: 20061215
  2. IBUPROFEN (IBUOROFEN) [Concomitant]
  3. PROVIGIL [Concomitant]
  4. LORATADINE [Concomitant]
  5. PREVACID [Concomitant]
  6. FISH OIL (FISH OIL) [Concomitant]
  7. MULTIVITAMIN [Concomitant]
  8. VITAMIN E (TOCOPHEROL/ 00110501/) [Concomitant]

REACTIONS (1)
  - BREAST HYPERPLASIA [None]
